FAERS Safety Report 4404225-0 (Version None)
Quarter: 2004Q3

REPORT INFORMATION
  Report Type: 
  Country: None (occurrence: None)
  Receive Date: 20040719
  Receipt Date: 20040713
  Transmission Date: 20050211
  Serious: Yes (Death, Congenital Anomaly)
  Sender: FDA-Public Use
  Company Number: 2004-118417-NL

PATIENT
  Age: 4 Month
  Sex: Male

DRUGS (2)
  1. MIRTAZAPINE [Suspect]
     Indication: DEPRESSION
     Dosage: 0.5 DF QD
     Route: 064
     Dates: start: 20031205, end: 20040106
  2. MOMETASONE FUROATE [Concomitant]
     Route: 064

REACTIONS (6)
  - CEREBRAL HAEMORRHAGE NEONATAL [None]
  - DRUG EXPOSURE DURING PREGNANCY [None]
  - LIMB HYPOPLASIA CONGENITAL [None]
  - LIMB REDUCTION DEFECT [None]
  - SYNDACTYLY [None]
  - TALIPES [None]
